FAERS Safety Report 6714330-1 (Version None)
Quarter: 2010Q2

REPORT INFORMATION
  Report Type: 
  Country: None (occurrence: None)
  Receive Date: 20100503
  Receipt Date: 20100422
  Transmission Date: 20101027
  Serious: Yes (Other)
  Sender: FDA-Public Use
  Company Number: 1000013471

PATIENT
  Age: 10 Year
  Sex: Male
  Weight: 84 kg

DRUGS (3)
  1. ESCITALOPRAM [Suspect]
  2. CARBAMAZEPINE [Suspect]
     Dosage: 1600 MG (800 MG, 2 IN 1 D)
  3. LAMOTRIGINE [Suspect]
     Dosage: 400 MG (200 MG, 2 IN 1 D)

REACTIONS (4)
  - ABNORMAL BEHAVIOUR [None]
  - HALLUCINATION [None]
  - INSOMNIA [None]
  - OFF LABEL USE [None]
